FAERS Safety Report 14280723 (Version 1)
Quarter: 2017Q4

REPORT INFORMATION
  Report Type: Report from Study
  Country: US (occurrence: US)
  Receive Date: 20171213
  Receipt Date: 20171213
  Transmission Date: 20180321
  Serious: Yes (Hospitalization, Other)
  Sender: FDA-Public Use
  Company Number: US-TAKEDA-2017MPI011003

PATIENT
  Age: 13 Year
  Sex: Male
  Weight: 59.2 kg

DRUGS (10)
  1. DOXORUBICIN [Suspect]
     Active Substance: DOXORUBICIN
     Indication: T-CELL TYPE ACUTE LEUKAEMIA
     Dosage: 25 MG/M2, UNK
     Route: 042
     Dates: start: 20170414
  2. PEGASPARGASE [Suspect]
     Active Substance: PEGASPARGASE
     Indication: T-CELL TYPE ACUTE LEUKAEMIA
     Dosage: UNK
     Route: 042
  3. THIOGUANINE [Suspect]
     Active Substance: THIOGUANINE
     Indication: T-CELL TYPE ACUTE LEUKAEMIA
     Dosage: 60 MG/M2, UNK
     Route: 048
  4. METHOTREXATE. [Suspect]
     Active Substance: METHOTREXATE
     Dosage: 5000 MG/M2
     Route: 042
  5. CYTARABINE. [Suspect]
     Active Substance: CYTARABINE
     Indication: T-CELL TYPE ACUTE LEUKAEMIA
     Dosage: 75 MG/M2, UNK
     Route: 042
     Dates: start: 20170414
  6. DEXAMETHASONE. [Suspect]
     Active Substance: DEXAMETHASONE
     Indication: T-CELL TYPE ACUTE LEUKAEMIA
     Dosage: 5 MG/M2, BID
     Route: 048
     Dates: start: 20170414
  7. METHOTREXATE. [Suspect]
     Active Substance: METHOTREXATE
     Indication: T-CELL TYPE ACUTE LEUKAEMIA
     Dosage: UNK
     Route: 037
  8. VINCRISTINE [Suspect]
     Active Substance: VINCRISTINE
     Indication: T-CELL TYPE ACUTE LEUKAEMIA
     Dosage: 1.5 MG/M2, UNK
     Route: 042
     Dates: start: 20170414
  9. VELCADE [Suspect]
     Active Substance: BORTEZOMIB
     Indication: T-CELL TYPE ACUTE LEUKAEMIA
     Dosage: 1.3 MG/M2, UNK
     Route: 042
     Dates: start: 20170414
  10. CYCLOPHOSPHAMIDE. [Suspect]
     Active Substance: CYCLOPHOSPHAMIDE
     Indication: T-CELL TYPE ACUTE LEUKAEMIA
     Dosage: 1000 MG/M2, UNK
     Route: 042
     Dates: start: 20170414

REACTIONS (3)
  - Venoocclusive liver disease [Recovering/Resolving]
  - Alanine aminotransferase increased [Recovering/Resolving]
  - Aspartate aminotransferase increased [Recovering/Resolving]

NARRATIVE: CASE EVENT DATE: 20171127
